FAERS Safety Report 16024918 (Version 1)
Quarter: 2019Q1

REPORT INFORMATION
  Report Type: Spontaneous
  Country: FR (occurrence: FR)
  Receive Date: 20190301
  Receipt Date: 20190301
  Transmission Date: 20190418
  Serious: Yes (Hospitalization, Other)
  Sender: FDA-Public Use
  Company Number: FR-PFIZER INC-2014167953

PATIENT
  Age: 52 Year
  Sex: Male
  Weight: 75 kg

DRUGS (6)
  1. ETOPOSIDE. [Suspect]
     Active Substance: ETOPOSIDE
     Dosage: 190 MG, 1X/DAY
     Dates: start: 20140219, end: 20140221
  2. FORTUM [Suspect]
     Active Substance: CEFTAZIDIME
     Dosage: UNK
     Dates: start: 20140226, end: 20140303
  3. ETOPOSIDE. [Suspect]
     Active Substance: ETOPOSIDE
     Indication: TRANSPLANT
     Dosage: UNK
     Dates: start: 20140211
  4. ARACYTINE [Suspect]
     Active Substance: CYTARABINE
     Dosage: 375 MG, 1X/DAY
     Dates: start: 20140219, end: 20140221
  5. ARACYTINE [Suspect]
     Active Substance: CYTARABINE
     Indication: TRANSPLANT
     Dosage: UNK
     Dates: start: 20140211
  6. ALKERAN [Suspect]
     Active Substance: MELPHALAN
     Indication: TRANSPLANT
     Dosage: 265 MG, UNK
     Dates: start: 20140222, end: 20140222

REACTIONS (4)
  - Transaminases increased [Recovering/Resolving]
  - Hepatic necrosis [Recovering/Resolving]
  - Acute kidney injury [Recovering/Resolving]
  - Blood bilirubin increased [Recovering/Resolving]

NARRATIVE: CASE EVENT DATE: 20140302
